FAERS Safety Report 9850553 (Version 1)
Quarter: 2013Q4

REPORT INFORMATION
  Report Type: Spontaneous
  Country: US (occurrence: None)
  Receive Date: 20131127
  Receipt Date: 20131127
  Transmission Date: 20140711
  Serious: No
  Sender: FDA-Public Use
  Company Number: 223933LEO

PATIENT
  Age: 59 Year
  Sex: Male

DRUGS (1)
  1. PICATO (INGENOL MESBUTATE) (0.05 %) [Suspect]
     Indication: PRECANCEROUS SKIN LESION
     Route: 061
     Dates: start: 20130914, end: 20130916

REACTIONS (3)
  - Application site erythema [None]
  - Application site exfoliation [None]
  - Application site vesicles [None]
